APPROVED DRUG PRODUCT: TOPIRAMATE
Active Ingredient: TOPIRAMATE
Strength: 200MG
Dosage Form/Route: CAPSULE, EXTENDED RELEASE;ORAL
Application: A217231 | Product #004 | TE Code: AB1
Applicant: DR REDDYS LABORATORIES LTD
Approved: Nov 17, 2023 | RLD: No | RS: No | Type: RX